FAERS Safety Report 20363065 (Version 1)
Quarter: 2022Q1

REPORT INFORMATION
  Report Type: Spontaneous
  Country: US (occurrence: US)
  Receive Date: 20220121
  Receipt Date: 20220121
  Transmission Date: 20220423
  Serious: Yes (Other)
  Sender: FDA-Public Use
  Company Number: US-PFIZER INC-202200057572

PATIENT
  Age: 69 Year
  Sex: Female

DRUGS (1)
  1. LYRICA [Suspect]
     Active Substance: PREGABALIN
     Indication: Pruritus
     Dosage: 75 MG, 1X/DAY (AT NIGHT)

REACTIONS (5)
  - Suicidal ideation [Unknown]
  - Drug dependence [Unknown]
  - Off label use [Unknown]
  - Drug ineffective for unapproved indication [Unknown]
  - Pruritus [Not Recovered/Not Resolved]
